FAERS Safety Report 14738185 (Version 2)
Quarter: 2018Q3

REPORT INFORMATION
  Report Type: Report from Study
  Country: FR (occurrence: FR)
  Receive Date: 20180409
  Receipt Date: 20180706
  Transmission Date: 20181010
  Serious: Yes (Disabling)
  Sender: FDA-Public Use
  Company Number: FR-PFIZER INC-2018017510

PATIENT
  Age: 57 Year
  Sex: Male
  Weight: 65 kg

DRUGS (3)
  1. SUTENT [Suspect]
     Active Substance: SUNITINIB MALATE
     Indication: RENAL CANCER
     Dosage: 50 MG, DAILY
     Route: 048
     Dates: start: 20150727, end: 20160717
  2. AMLOR [Concomitant]
     Active Substance: AMLODIPINE BESYLATE
     Indication: HYPERTENSION
     Dosage: 10 MG, DAILY
     Route: 048
  3. SUTENT [Suspect]
     Active Substance: SUNITINIB MALATE
     Dosage: 37.5 MG, DAILY
     Route: 048
     Dates: start: 20160718

REACTIONS (1)
  - Femur fracture [Not Recovered/Not Resolved]

NARRATIVE: CASE EVENT DATE: 20170331
